FAERS Safety Report 12951914 (Version 1)
Quarter: 2016Q4

REPORT INFORMATION
  Report Type: Spontaneous
  Country: US (occurrence: US)
  Receive Date: 20161117
  Receipt Date: 20161117
  Transmission Date: 20170207
  Serious: Yes (Other)
  Sender: FDA-Public Use
  Company Number: US-PFIZER INC-2016526853

PATIENT
  Sex: Female

DRUGS (1)
  1. XELJANZ XR [Suspect]
     Active Substance: TOFACITINIB CITRATE
     Dosage: 11 MG, UNK

REACTIONS (27)
  - Haemorrhagic diathesis [Unknown]
  - Fatigue [Unknown]
  - Dysphagia [Unknown]
  - Parosmia [Unknown]
  - Dyspepsia [Unknown]
  - Headache [Unknown]
  - Back pain [Unknown]
  - Dry mouth [Unknown]
  - Decreased appetite [Unknown]
  - Swelling [Unknown]
  - Tenderness [Unknown]
  - Cough [Unknown]
  - Abdominal pain [Unknown]
  - Vomiting [Unknown]
  - Dizziness [Unknown]
  - Alopecia [Unknown]
  - Chest pain [Unknown]
  - Musculoskeletal stiffness [Unknown]
  - Hypoaesthesia [Unknown]
  - Balance disorder [Unknown]
  - Increased tendency to bruise [Unknown]
  - Paralysis [Unknown]
  - Dry eye [Unknown]
  - Nausea [Unknown]
  - Arthralgia [Unknown]
  - Weight increased [Unknown]
  - Synovitis [Unknown]
